FAERS Safety Report 23799570 (Version 1)
Quarter: 2024Q2

REPORT INFORMATION
  Report Type: Spontaneous
  Country: BR (occurrence: None)
  Receive Date: 20240430
  Receipt Date: 20240430
  Transmission Date: 20240716
  Serious: Yes (Other)
  Sender: FDA-Public Use
  Company Number: 2024A099428

PATIENT
  Sex: Male
  Weight: 70 kg

DRUGS (1)
  1. TAGRISSO [Suspect]
     Active Substance: OSIMERTINIB
     Indication: Non-small cell lung cancer metastatic
     Route: 048

REACTIONS (5)
  - Pleural disorder [Unknown]
  - Liver disorder [Unknown]
  - Meningeal disorder [Unknown]
  - Pneumonitis [Unknown]
  - Lung disorder [Unknown]
